FAERS Safety Report 18985106 (Version 2)
Quarter: 2021Q1

REPORT INFORMATION
  Report Type: Spontaneous
  Country: US (occurrence: US)
  Receive Date: 20210309
  Receipt Date: 20210311
  Transmission Date: 20210420
  Serious: Yes (Other)
  Sender: FDA-Public Use
  Company Number: US-SA-2021SA077389

PATIENT
  Sex: Male
  Weight: 156.1 kg

DRUGS (10)
  1. CLOBETASOL [CLOBETASOL PROPIONATE] [Concomitant]
     Dosage: 250 MG
  2. VALTREX [Concomitant]
     Active Substance: VALACYCLOVIR HYDROCHLORIDE
     Dosage: 250 MG
  3. MULTIVITAMINS [VITAMINS NOS] [Concomitant]
     Active Substance: VITAMINS
  4. HUMIRA [Concomitant]
     Active Substance: ADALIMUMAB
  5. NAPROXEN. [Concomitant]
     Active Substance: NAPROXEN
     Indication: RHEUMATOID ARTHRITIS
  6. TRIAMCINOLONE [TRIAMCINOLONE ACETONIDE] [Concomitant]
  7. KEVZARA [Suspect]
     Active Substance: SARILUMAB
     Indication: RHEUMATOID ARTHRITIS
     Dosage: 200 MG, QOW
     Route: 058
     Dates: start: 20201028, end: 202101
  8. MYRBETRIQ [Concomitant]
     Active Substance: MIRABEGRON
  9. TRIAMCINOLONE ACETONIDE. [Concomitant]
     Active Substance: TRIAMCINOLONE ACETONIDE
  10. CLOBETASOL [Concomitant]
     Active Substance: CLOBETASOL

REACTIONS (4)
  - Rheumatoid arthritis [Unknown]
  - Pruritus [Not Recovered/Not Resolved]
  - Bone pain [Unknown]
  - Pain [Unknown]
